FAERS Safety Report 24919980 (Version 1)
Quarter: 2025Q1

REPORT INFORMATION
  Report Type: Report from Study
  Country: CA (occurrence: CA)
  Receive Date: 20250204
  Receipt Date: 20250204
  Transmission Date: 20250408
  Serious: No
  Sender: EXELIXIS
  Company Number: CA-IPSEN Group, Research and Development-2024-00235

PATIENT
  Sex: Female
  Weight: 93.1 kg

DRUGS (8)
  1. CABOMETYX [Suspect]
     Active Substance: CABOZANTINIB S-MALATE
     Indication: Renal cell carcinoma
     Dosage: 40 MG, QD
     Route: 048
     Dates: start: 20230815
  2. CABOMETYX [Suspect]
     Active Substance: CABOZANTINIB S-MALATE
     Dosage: 40 MG, QOD
     Route: 048
  3. CABOMETYX [Suspect]
     Active Substance: CABOZANTINIB S-MALATE
     Dosage: 20 MG, QOD
     Route: 048
  4. CABOMETYX [Suspect]
     Active Substance: CABOZANTINIB S-MALATE
     Dosage: 20 MG, QD
     Route: 048
     Dates: end: 20240910
  5. SYNTHROID [Concomitant]
     Active Substance: LEVOTHYROXINE SODIUM
  6. PREDNISONE [Concomitant]
     Active Substance: PREDNISONE
  7. FLONASE [Concomitant]
     Active Substance: FLUTICASONE PROPIONATE
  8. HERBALS\TURMERIC [Concomitant]
     Active Substance: HERBALS\TURMERIC

REACTIONS (3)
  - Headache [Unknown]
  - Diarrhoea [Unknown]
  - Off label use [Unknown]
